FAERS Safety Report 16261606 (Version 1)
Quarter: 2019Q2

REPORT INFORMATION
  Report Type: Report from Study
  Country: US (occurrence: US)
  Receive Date: 20190501
  Receipt Date: 20190501
  Transmission Date: 20190711
  Serious: Yes (Other)
  Sender: FDA-Public Use
  Company Number: US-SA-2019SA116215

PATIENT
  Age: 57 Year
  Sex: Male

DRUGS (1)
  1. INSULIN GLARGINE/LIXISENATIDE [Suspect]
     Active Substance: INSULIN GLARGINE\LIXISENATIDE
     Dosage: 30 U
     Dates: start: 20180401

REACTIONS (1)
  - Hernia [Recovering/Resolving]

NARRATIVE: CASE EVENT DATE: 20190322
